FAERS Safety Report 21873601 (Version 1)
Quarter: 2023Q1

REPORT INFORMATION
  Report Type: Spontaneous
  Country: US (occurrence: US)
  Receive Date: 20230117
  Receipt Date: 20230117
  Transmission Date: 20230417
  Serious: No
  Sender: FDA-Public Use
  Company Number: US-PFIZER INC-PV202300008735

PATIENT
  Age: 53 Year
  Sex: Male

DRUGS (1)
  1. AZITHROMYCIN [Suspect]
     Active Substance: AZITHROMYCIN
     Indication: Nasopharyngitis
     Dosage: UNK

REACTIONS (2)
  - Therapeutic product effect incomplete [Unknown]
  - Off label use [Unknown]
